FAERS Safety Report 23419101 (Version 1)
Quarter: 2024Q1

REPORT INFORMATION
  Report Type: Report from Study
  Country: US (occurrence: US)
  Receive Date: 20240118
  Receipt Date: 20240118
  Transmission Date: 20240410
  Serious: Yes (Other)
  Sender: FDA-Public Use
  Company Number: US-ABBVIE-5592664

PATIENT
  Sex: Male

DRUGS (1)
  1. VENCLEXTA [Suspect]
     Active Substance: VENETOCLAX
     Indication: Acute leukaemia
     Dosage: FORM STRENGTH: 100 MG, VENCLEXTA 400MG DAILY, TAKE 4 TABLETS BY MOUTH DAILY FOR 7 DAYS AND THEN STOP
     Route: 048

REACTIONS (1)
  - Bone marrow transplant [Not Recovered/Not Resolved]
